FAERS Safety Report 23125426 (Version 2)
Quarter: 2023Q4

REPORT INFORMATION
  Report Type: Spontaneous
  Country: DK (occurrence: DK)
  Receive Date: 20231030
  Receipt Date: 20231114
  Transmission Date: 20240110
  Serious: Yes (Other)
  Sender: FDA-Public Use
  Company Number: DK-AMGEN-DNKSP2020155760

PATIENT
  Age: 25 Year
  Sex: Male

DRUGS (27)
  1. ADALIMUMAB [Suspect]
     Active Substance: ADALIMUMAB\ISOPROPYL ALCOHOL
     Indication: Hidradenitis
     Dosage: UNK
     Route: 065
  2. ADALIMUMAB [Suspect]
     Active Substance: ADALIMUMAB\ISOPROPYL ALCOHOL
     Dosage: UNKNOWN
     Route: 065
  3. AZATHIOPRINE [Suspect]
     Active Substance: AZATHIOPRINE
     Indication: Hidradenitis
     Dosage: UNK
     Route: 065
  4. AZATHIOPRINE [Suspect]
     Active Substance: AZATHIOPRINE
     Dosage: UNKNOWN
     Route: 065
  5. CIPROFLOXACIN HYDROCHLORIDE [Suspect]
     Active Substance: CIPROFLOXACIN HYDROCHLORIDE
     Indication: Hidradenitis
     Dosage: UNK
     Route: 065
  6. CLINDAMYCIN [Suspect]
     Active Substance: CLINDAMYCIN
     Indication: Hidradenitis
     Dosage: UNK
     Route: 065
  7. CLINDAMYCIN [Suspect]
     Active Substance: CLINDAMYCIN
     Dosage: UNKNOWN
     Route: 065
  8. DICLOXACILLIN [Suspect]
     Active Substance: DICLOXACILLIN
     Indication: Hidradenitis
     Dosage: UNK
     Route: 065
  9. DOXYCYCLINE [Suspect]
     Active Substance: DOXYCYCLINE
     Indication: Hidradenitis
     Dosage: UNK
     Route: 065
  10. DOXYCYCLINE [Suspect]
     Active Substance: DOXYCYCLINE
     Dosage: UNKNOWN
     Route: 065
  11. GUSELKUMAB [Suspect]
     Active Substance: GUSELKUMAB
     Dosage: 100 MG, QW61D
     Route: 058
  12. GUSELKUMAB [Suspect]
     Active Substance: GUSELKUMAB
     Dosage: UNK  (6100 MG 1 WEEK)
     Route: 065
  13. GUSELKUMAB [Suspect]
     Active Substance: GUSELKUMAB
     Dosage: 100 MG, 6 TIMES A WEEK
     Route: 065
  14. GUSELKUMAB [Suspect]
     Active Substance: GUSELKUMAB
     Dosage: 100 MG, UNKNOWN (100 MG AT WEEK FOUR)
     Route: 058
  15. GUSELKUMAB [Suspect]
     Active Substance: GUSELKUMAB
     Dosage: 100 MG, UNKNOWN (100 MG, 8 TIMES A WEEK (MAINTENANCE DOSE))
     Route: 058
  16. GUSELKUMAB [Suspect]
     Active Substance: GUSELKUMAB
     Indication: Hidradenitis
     Dosage: 100 MG, UNKNOWN (100 MILLIGRAM AT WEEK ZERO)
     Route: 058
     Dates: start: 201904
  17. GUSELKUMAB [Suspect]
     Active Substance: GUSELKUMAB
     Dosage: 100 MILLIGRAM AT WEEK FOUR
     Route: 058
  18. METRONIDAZOLE [Suspect]
     Active Substance: METRONIDAZOLE
     Indication: Hidradenitis
     Dosage: UNK
     Route: 065
  19. METRONIDAZOLE [Suspect]
     Active Substance: METRONIDAZOLE
     Dosage: UNKNOWN
     Route: 065
  20. PENICILLIN G [Suspect]
     Active Substance: PENICILLIN G
     Indication: Hidradenitis
     Dosage: UNK
     Route: 065
  21. PENICILLIN G [Suspect]
     Active Substance: PENICILLIN G
     Dosage: UNKNOWN
     Route: 065
  22. RIFAMPIN [Suspect]
     Active Substance: RIFAMPIN
     Indication: Hidradenitis
     Dosage: UNK
     Route: 065
  23. RIFAMPIN [Suspect]
     Active Substance: RIFAMPIN
     Dosage: UNKNOWN
     Route: 065
  24. TETRACYCLINE [Suspect]
     Active Substance: TETRACYCLINE
     Indication: Hidradenitis
     Dosage: UNK
     Route: 065
  25. TETRACYCLINE [Suspect]
     Active Substance: TETRACYCLINE
     Dosage: UNKNOWN
     Route: 065
  26. USTEKINUMAB [Suspect]
     Active Substance: USTEKINUMAB
     Indication: Hidradenitis
     Dosage: UNK
     Route: 065
  27. USTEKINUMAB [Suspect]
     Active Substance: USTEKINUMAB
     Dosage: UNKNOWN
     Route: 065

REACTIONS (4)
  - Hidradenitis [Recovering/Resolving]
  - Pyrexia [Unknown]
  - Abdominal pain [Unknown]
  - Drug ineffective [Unknown]
